FAERS Safety Report 14907700 (Version 1)
Quarter: 2018Q2

REPORT INFORMATION
  Report Type: Spontaneous
  Country: US (occurrence: US)
  Receive Date: 20180517
  Receipt Date: 20180517
  Transmission Date: 20180711
  Serious: No
  Sender: FDA-Public Use
  Company Number: US-VANDA PHARMACEUTICALS, INC-2017ILOUS001661

PATIENT
  Sex: Female

DRUGS (2)
  1. FANAPT [Suspect]
     Active Substance: ILOPERIDONE
     Indication: PRODUCT USED FOR UNKNOWN INDICATION
     Dosage: 6 MG, MORNING
  2. FANAPT [Suspect]
     Active Substance: ILOPERIDONE
     Dosage: 8 MG, BEDTIME

REACTIONS (2)
  - Essential tremor [Recovered/Resolved]
  - Muscle contractions involuntary [Unknown]
